FAERS Safety Report 20873134 (Version 1)
Quarter: 2022Q2

REPORT INFORMATION
  Report Type: Spontaneous
  Country: US (occurrence: None)
  Receive Date: 20220525
  Receipt Date: 20220525
  Transmission Date: 20220721
  Serious: Yes (Death)
  Sender: FDA-Public Use
  Company Number: 2022A194234

PATIENT
  Sex: Male
  Weight: 99.8 kg

DRUGS (1)
  1. SAPHNELO [Suspect]
     Active Substance: ANIFROLUMAB-FNIA
     Indication: Lupus nephritis
     Route: 042
     Dates: start: 20220401, end: 20220519

REACTIONS (1)
  - Death [Fatal]
